FAERS Safety Report 16588697 (Version 1)
Quarter: 2019Q3

REPORT INFORMATION
  Report Type: Other
  Country: DE (occurrence: DE)
  Receive Date: 20190718
  Receipt Date: 20190718
  Transmission Date: 20191004
  Serious: Yes (Hospitalization, Other)
  Sender: FDA-Public Use
  Company Number: DE-CELLTRION INC.-2019DE022707

PATIENT

DRUGS (13)
  1. RITUXIMAB (UNKNOWN) [Suspect]
     Active Substance: RITUXIMAB
     Dosage: NK MG, NK
  2. DEKRISTOL [Concomitant]
     Active Substance: CHOLECALCIFEROL
     Dosage: 20000 IE, 1X1/FR
  3. CYCLOPHOSPHAMID [Suspect]
     Active Substance: CYCLOPHOSPHAMIDE
     Dosage: NK MG, NK
  4. COTRIM FORTE [Concomitant]
     Active Substance: SULFAMETHOXAZOLE\TRIMETHOPRIM
     Dosage: 800|160 MG, 1X/MO, MI, FR
  5. ALLOPURINOL. [Concomitant]
     Active Substance: ALLOPURINOL
     Dosage: 300 MG, 1X1
  6. VINCRISTIN [Suspect]
     Active Substance: VINCRISTINE
     Dosage: NK MG, NK
  7. CEFASEL [Concomitant]
     Dosage: 100 MG, 1X1
  8. PANTOPRAZOL [Concomitant]
     Active Substance: PANTOPRAZOLE SODIUM
     Dosage: 40 MG, 1-2
  9. NEULASTA [Concomitant]
     Active Substance: PEGFILGRASTIM
     Dosage: NK MG
  10. PREDNISOLON [Suspect]
     Active Substance: PREDNISOLONE
     Dosage: 50 MG
  11. UROMITEXAN [Concomitant]
     Active Substance: MESNA
     Dosage: 400 MG
  12. DOXORUBICIN [Suspect]
     Active Substance: DOXORUBICIN
     Dosage: NK MG, NK
  13. ACICLOVIR [Concomitant]
     Active Substance: ACYCLOVIR
     Dosage: 400 MG, 1X1

REACTIONS (5)
  - Asthenia [Unknown]
  - Leukopenia [Unknown]
  - Dyspnoea [Unknown]
  - Decreased appetite [Unknown]
  - Pain [Unknown]
